FAERS Safety Report 6276580-0 (Version None)
Quarter: 2009Q3

REPORT INFORMATION
  Report Type: 
  Country: None (occurrence: None)
  Receive Date: 20090722
  Receipt Date: 20081120
  Transmission Date: 20100115
  Serious: No
  Sender: FDA-Public Use
  Company Number: US-BRISTOL-MYERS SQUIBB COMPANY-14025274

PATIENT
  Age: 79 Year
  Sex: Female
  Weight: 60 kg

DRUGS (8)
  1. COUMADIN [Suspect]
     Indication: ATRIAL FIBRILLATION
     Dosage: 1D.F=5 MG DAILY/6 DAYS + 2.5MG/1DAY  INCREASED TO 5 MG DAILY/6 DAYS + 7.5MG/1DAY
  2. COREG [Suspect]
     Dosage: STARTED 2-3 WEEKS AGO
  3. CALCIUM + VITAMIN D [Concomitant]
  4. LANOXIN [Concomitant]
  5. NORVASC [Concomitant]
  6. TOPROL-XL [Concomitant]
  7. LOVENOX [Concomitant]
  8. LEVOXYL [Concomitant]

REACTIONS (4)
  - BACK PAIN [None]
  - BLOOD PRESSURE INCREASED [None]
  - FEELING HOT [None]
  - PROTHROMBIN TIME SHORTENED [None]
